FAERS Safety Report 8333042-4 (Version None)
Quarter: 2012Q2

REPORT INFORMATION
  Report Type: 
  Country: None (occurrence: None)
  Receive Date: 20120503
  Receipt Date: 20120426
  Transmission Date: 20120825
  Serious: Yes (Other)
  Sender: FDA-Public Use
  Company Number: PHHY2012DE036712

PATIENT
  Age: 74 Year
  Sex: Male

DRUGS (5)
  1. EXJADE [Suspect]
     Dosage: 1000 MG, UNK
     Route: 048
     Dates: start: 20120327
  2. EXJADE [Suspect]
     Dosage: 500 MG, UNK
     Route: 048
     Dates: start: 20120403
  3. EXJADE [Suspect]
     Dosage: 500 MG, UNK
     Route: 048
     Dates: start: 20120417
  4. EXJADE [Suspect]
     Dosage: 1000 MG, UNK
  5. EXJADE [Suspect]
     Indication: IRON OVERLOAD
     Dosage: 500 MG, UNK
     Route: 048
     Dates: start: 20120319

REACTIONS (1)
  - VISUAL IMPAIRMENT [None]
